FAERS Safety Report 16872357 (Version 2)
Quarter: 2024Q2

REPORT INFORMATION
  Report Type: Spontaneous
  Country: CA (occurrence: CA)
  Receive Date: 20191001
  Receipt Date: 20240502
  Transmission Date: 20240716
  Serious: Yes (Death, Hospitalization, Other)
  Sender: FDA-Public Use
  Company Number: CA-TEVA-2019-CA-1113376

PATIENT
  Age: 67 Year
  Sex: Female

DRUGS (14)
  1. CALCIUM [Suspect]
     Active Substance: CALCIUM
     Indication: Product used for unknown indication
     Route: 065
  2. METOPROLOL [Suspect]
     Active Substance: METOPROLOL
     Indication: Product used for unknown indication
     Route: 065
  3. METOPROLOL [Suspect]
     Active Substance: METOPROLOL
     Indication: Product used for unknown indication
     Route: 065
  4. SANDOSTATIN [Suspect]
     Active Substance: OCTREOTIDE ACETATE
     Indication: Carcinoid tumour
     Route: 030
  5. SANDOSTATIN [Suspect]
     Active Substance: OCTREOTIDE ACETATE
     Indication: Carcinoid tumour
     Route: 030
  6. SANDOSTATIN [Suspect]
     Active Substance: OCTREOTIDE ACETATE
     Indication: Carcinoid tumour
     Route: 030
  7. SANDOSTATIN [Suspect]
     Active Substance: OCTREOTIDE ACETATE
     Indication: Carcinoid tumour
     Dosage: TIME INTERVAL: TOTAL
     Route: 058
  8. AFINITOR [Suspect]
     Active Substance: EVEROLIMUS
     Indication: Neuroendocrine tumour
     Route: 048
  9. NEUPOGEN [Concomitant]
     Active Substance: FILGRASTIM
     Indication: Product used for unknown indication
     Dosage: DOSE FORM:SOLUTION INTRAVENOUS
     Route: 042
  10. ELIQUIS [Concomitant]
     Active Substance: APIXABAN
     Indication: Product used for unknown indication
     Route: 065
  11. FILGRASTIM [Concomitant]
     Active Substance: FILGRASTIM
     Indication: Product used for unknown indication
     Route: 065
  12. FUROSEMIDE [Concomitant]
     Active Substance: FUROSEMIDE
     Indication: Product used for unknown indication
     Route: 065
  13. HYDROMORPHONE [Concomitant]
     Active Substance: HYDROMORPHONE
     Indication: Product used for unknown indication
     Dosage: DOSE FORM:CAPSULE, SUSTAINEDRELEASE
     Route: 048
  14. OCTREOTIDE ACETATE [Suspect]
     Active Substance: OCTREOTIDE ACETATE
     Indication: Carcinoid tumour
     Route: 058

REACTIONS (60)
  - Abdominal mass [Fatal]
  - Fatigue [Fatal]
  - Flushing [Fatal]
  - Loss of consciousness [Fatal]
  - Lumbar vertebral fracture [Fatal]
  - Nausea [Fatal]
  - Oedema peripheral [Fatal]
  - Oedema [Fatal]
  - Ocular neoplasm [Fatal]
  - Palpitations [Fatal]
  - Pelvic neoplasm [Fatal]
  - Pelvic pain [Fatal]
  - Platelet count decreased [Fatal]
  - Product deposit [Fatal]
  - Tachycardia [Fatal]
  - Tenderness [Fatal]
  - Atrial fibrillation [Fatal]
  - Cardiac fibrillation [Fatal]
  - Cataract [Fatal]
  - Carcinoid tumour [Fatal]
  - Dizziness [Fatal]
  - Dyschromatopsia [Fatal]
  - Erythema [Fatal]
  - Fall [Fatal]
  - Diarrhoea [Fatal]
  - Feeling cold [Fatal]
  - Flatulence [Fatal]
  - Frequent bowel movements [Fatal]
  - Heart rate decreased [Fatal]
  - Hypertension [Fatal]
  - Inflammation [Fatal]
  - Injection site mass [Fatal]
  - Weight decreased [Fatal]
  - Injection site pain [Fatal]
  - Alopecia [Fatal]
  - Joint swelling [Fatal]
  - Lumbar vertebral fracture [Fatal]
  - Malignant neoplasm progression [Fatal]
  - Metastases to bone [Fatal]
  - Metastases to chest wall [Fatal]
  - Metastases to liver [Fatal]
  - Metastases to thorax [Fatal]
  - Mouth ulceration [Fatal]
  - Needle issue [Fatal]
  - Neoplasm [Fatal]
  - Asthenia [Fatal]
  - Neurogenic shock [Fatal]
  - Osteoporosis [Fatal]
  - Pain [Fatal]
  - Peripheral coldness [Fatal]
  - Peripheral swelling [Fatal]
  - Recurrent cancer [Fatal]
  - Sputum discoloured [Fatal]
  - Back pain [Fatal]
  - Blood pressure increased [Fatal]
  - Body temperature decreased [Fatal]
  - Bone formation decreased [Fatal]
  - Contusion [Fatal]
  - Decreased appetite [Fatal]
  - Blood urine present [Fatal]
